FAERS Safety Report 6064345-4 (Version None)
Quarter: 2009Q1

REPORT INFORMATION
  Report Type: 
  Country: None (occurrence: None)
  Receive Date: 20090203
  Receipt Date: 20090203
  Transmission Date: 20090719
  Serious: Yes (Hospitalization)
  Sender: FDA-Public Use
  Company Number: None

PATIENT
  Sex: Female
  Weight: 59.75 kg

DRUGS (4)
  1. TAXOL [Suspect]
     Dosage: 220 MG
     Dates: end: 20081210
  2. BENADRYL [Concomitant]
  3. CIMETIDINE [Concomitant]
  4. DECADRON [Concomitant]

REACTIONS (9)
  - BLOOD PRESSURE SYSTOLIC INCREASED [None]
  - DIPLOPIA [None]
  - DIZZINESS [None]
  - MUSCLE TWITCHING [None]
  - NAUSEA [None]
  - NEUROPATHY PERIPHERAL [None]
  - PARANEOPLASTIC CEREBELLAR DEGENERATION [None]
  - VERTIGO [None]
  - VOMITING [None]
